FAERS Safety Report 17074666 (Version 1)
Quarter: 2019Q4

REPORT INFORMATION
  Report Type: Spontaneous
  Country: US (occurrence: US)
  Receive Date: 20191126
  Receipt Date: 20191126
  Transmission Date: 20200122
  Serious: No
  Sender: FDA-Public Use
  Company Number: US-DRREDDYS-USA/USA/19/0116172

PATIENT
  Age: 64 Year
  Sex: Female
  Weight: 63.45 kg

DRUGS (1)
  1. ZOLEDRONIC ACID INJECTION, 5 MG (BASE)/100 ML [Suspect]
     Active Substance: ZOLEDRONIC ACID
     Indication: OSTEOPOROSIS
     Dosage: 5 MG (BASE)/100 ML
     Route: 042

REACTIONS (2)
  - Infusion site extravasation [Recovering/Resolving]
  - Injection site swelling [Recovering/Resolving]

NARRATIVE: CASE EVENT DATE: 20191113
